FAERS Safety Report 9219859 (Version 2)
Quarter: 2013Q4

REPORT INFORMATION
  Report Type: Spontaneous
  Country: US (occurrence: None)
  Receive Date: 20120828
  Receipt Date: 20131217
  Transmission Date: 20140711
  Serious: Yes (Other)
  Sender: FDA-Public Use
  Company Number: 2011BH033807

PATIENT
  Sex: Female

DRUGS (2)
  1. GAMMAGARD LIQUID [Suspect]
     Indication: BLOOD IMMUNOGLOBULIN G DECREASED
     Dosage: (1 ONCE), IV? ? ? ?
  2. GAMMAGARD LIQUID [Suspect]
     Indication: IMMUNODEFICIENCY COMMON VARIABLE
     Dosage: (1 ONCE), IV? ? ? ?

REACTIONS (5)
  - Anaphylactic reaction [None]
  - Respiratory arrest [None]
  - Rash [None]
  - Pruritus [None]
  - Urticaria [None]
